FAERS Safety Report 15363326 (Version 6)
Quarter: 2021Q4

REPORT INFORMATION
  Report Type: Spontaneous
  Country: JP (occurrence: JP)
  Receive Date: 20180907
  Receipt Date: 20211221
  Transmission Date: 20220303
  Serious: Yes (Life-Threatening, Hospitalization, Other)
  Sender: FDA-Public Use
  Company Number: JP-MLMSERVICE-20180823-1347241-1

PATIENT
  Age: 49 Year
  Sex: Male

DRUGS (20)
  1. OXALIPLATIN [Suspect]
     Active Substance: OXALIPLATIN
     Indication: Metastases to bone
     Dosage: 85 MG/M2, QCY
  2. OXALIPLATIN [Suspect]
     Active Substance: OXALIPLATIN
     Indication: Metastases to peritoneum
     Dosage: UNK, QCY(COLON CANCER)
  3. OXALIPLATIN [Suspect]
     Active Substance: OXALIPLATIN
     Indication: Colon cancer
  4. OXALIPLATIN [Suspect]
     Active Substance: OXALIPLATIN
     Indication: Metastases to liver
  5. OXALIPLATIN [Suspect]
     Active Substance: OXALIPLATIN
     Indication: Colon cancer
  6. FLUOROURACIL [Suspect]
     Active Substance: FLUOROURACIL
     Indication: Metastases to bone
     Dosage: 400 MG/M2, QCY
     Route: 040
  7. FLUOROURACIL [Suspect]
     Active Substance: FLUOROURACIL
     Indication: Metastases to peritoneum
     Dosage: 2400 MG/M2, QCY
     Route: 042
  8. FLUOROURACIL [Suspect]
     Active Substance: FLUOROURACIL
     Indication: Colon cancer
     Dosage: REDUCED DOSE, QCY
     Route: 040
  9. FLUOROURACIL [Suspect]
     Active Substance: FLUOROURACIL
     Indication: Metastases to liver
     Dosage: UNK, QCY(THE SECOND COURSE OF TREATMENT WAS PERFORMED AT A REDUCED DOSE)
  10. FLUOROURACIL [Suspect]
     Active Substance: FLUOROURACIL
     Indication: Colon cancer
  11. BEVACIZUMAB [Suspect]
     Active Substance: BEVACIZUMAB
     Indication: Metastases to bone
     Dosage: 5 MG/KG, QCY
  12. BEVACIZUMAB [Suspect]
     Active Substance: BEVACIZUMAB
     Indication: Metastases to peritoneum
     Dosage: UNK, QOW
  13. BEVACIZUMAB [Suspect]
     Active Substance: BEVACIZUMAB
     Indication: Colon cancer
     Dosage: UNK, QCY(THE SECOND COURSE OF TREATMENT WAS PERFORMED AT A REDUCED DOSE)
  14. BEVACIZUMAB [Suspect]
     Active Substance: BEVACIZUMAB
     Indication: Metastases to liver
  15. BEVACIZUMAB [Suspect]
     Active Substance: BEVACIZUMAB
     Indication: Colon cancer
  16. LEUCOVORIN [Suspect]
     Active Substance: LEUCOVORIN
     Indication: Metastases to bone
     Dosage: 200 MG/M2, QCY
  17. LEUCOVORIN [Suspect]
     Active Substance: LEUCOVORIN
     Indication: Metastases to liver
     Dosage: UNK, QCY(THE SECOND COURSE OF TREATMENT WAS PERFORMED AT A REDUCED DOSE)
     Route: 065
  18. LEUCOVORIN [Suspect]
     Active Substance: LEUCOVORIN
     Indication: Metastases to peritoneum
  19. LEUCOVORIN [Suspect]
     Active Substance: LEUCOVORIN
     Indication: Colon cancer
  20. LEUCOVORIN [Suspect]
     Active Substance: LEUCOVORIN
     Indication: Colon cancer stage IV

REACTIONS (5)
  - Hepatic encephalopathy [Recovered/Resolved]
  - Coma [Recovered/Resolved]
  - Depressed level of consciousness [Recovered/Resolved]
  - Hyperammonaemia [Recovering/Resolving]
  - Neutropenia [Recovered/Resolved]
